FAERS Safety Report 7762119-7 (Version None)
Quarter: 2011Q3

REPORT INFORMATION
  Report Type: 
  Country: None (occurrence: None)
  Receive Date: 20110920
  Receipt Date: 20110908
  Transmission Date: 20111222
  Serious: Yes (Death, Hospitalization, Other)
  Sender: FDA-Public Use
  Company Number: GB-PFIZER INC-2011211859

PATIENT
  Age: 55 Year
  Sex: Male

DRUGS (12)
  1. LACTULOSE [Concomitant]
     Dosage: 30 ML, 2X/DAY
     Route: 065
  2. SIMVASTATIN [Concomitant]
     Dosage: 40 MG, PER DAY
     Route: 065
  3. PROCYCLIDINE [Concomitant]
     Dosage: 5 MG, 3X/DAY
     Route: 065
  4. CHLORPROMAZINE [Concomitant]
     Dosage: 200 MG, 1X/DAY AT NIGHT
     Route: 065
  5. DIAZEPAM [Concomitant]
     Dosage: 5 MG, 2X/DAY
     Route: 065
  6. OMEPRAZOLE [Concomitant]
     Indication: GASTRITIS
     Dosage: 20 MG, PER DAY
     Route: 065
  7. CITALOPRAM [Concomitant]
     Dosage: 40 MG, 1X/DAY
     Route: 065
  8. VALPROATE SODIUM [Concomitant]
     Dosage: 200 MG, 2X/DAY
     Route: 065
  9. CLOZAPINE [Suspect]
     Indication: SCHIZOPHRENIA
     Dosage: 400 MG, 2X/DAY
     Route: 048
     Dates: start: 20081211, end: 20110807
  10. CHLORPROMAZINE [Concomitant]
     Dosage: 50 MG, 3X/DAY
     Route: 065
  11. IBUPROFEN [Suspect]
     Indication: PAIN
     Dosage: 600 MG, 1X/DAY
     Route: 065
  12. VITAMIN B NOS [Concomitant]
     Dosage: 1 DF, PER DAY
     Route: 065

REACTIONS (10)
  - WHITE BLOOD CELL COUNT INCREASED [None]
  - MALIGNANT MELANOMA [None]
  - GENERAL PHYSICAL HEALTH DETERIORATION [None]
  - METASTASES TO CENTRAL NERVOUS SYSTEM [None]
  - HAEMOPTYSIS [None]
  - MONOCYTE COUNT INCREASED [None]
  - NEUTROPHIL COUNT INCREASED [None]
  - OTORRHOEA [None]
  - COUGH [None]
  - PNEUMONIA ASPIRATION [None]
